FAERS Safety Report 8325563-5 (Version None)
Quarter: 2012Q2

REPORT INFORMATION
  Report Type: 
  Country: None (occurrence: None)
  Receive Date: 20120501
  Receipt Date: 20120420
  Transmission Date: 20120825
  Serious: Yes (Hospitalization)
  Sender: FDA-Public Use
  Company Number: US-JNJFOC-20120311518

PATIENT
  Sex: Female
  Weight: 46 kg

DRUGS (16)
  1. CLOTRIMAZOLE [Concomitant]
     Route: 061
  2. MORPHINE [Concomitant]
  3. FERROUS SULFATE TAB [Concomitant]
  4. REMICADE [Suspect]
     Indication: CROHN'S DISEASE
     Route: 042
     Dates: start: 20041224, end: 20060606
  5. IRON [Concomitant]
  6. DIFLUCAN [Concomitant]
  7. NYSTATIN [Concomitant]
  8. MIDAZOLAM [Concomitant]
  9. HUMIRA [Concomitant]
     Dates: start: 20080906, end: 20120204
  10. ACETAMINOPHEN [Concomitant]
  11. LOVENOX [Concomitant]
  12. PEPCID [Concomitant]
  13. LIDOCAINE [Concomitant]
  14. LOTRISONE [Concomitant]
  15. FOLIC ACID [Concomitant]
  16. HYDROMORPHONE HCL [Concomitant]

REACTIONS (2)
  - POSTOPERATIVE WOUND INFECTION [None]
  - CROHN'S DISEASE [None]
